FAERS Safety Report 24654080 (Version 1)
Quarter: 2024Q4

REPORT INFORMATION
  Report Type: Spontaneous
  Country: HU (occurrence: HU)
  Receive Date: 20241122
  Receipt Date: 20241122
  Transmission Date: 20250114
  Serious: Yes (Hospitalization)
  Sender: ELI LILLY AND COMPANY
  Company Number: HU-ELI_LILLY_AND_COMPANY-HU202411009420

PATIENT
  Age: 48 Year
  Sex: Male

DRUGS (1)
  1. MOUNJARO [Suspect]
     Active Substance: TIRZEPATIDE
     Indication: Weight control
     Dosage: 2.5 MG, WEEKLY (1/W)
     Route: 058

REACTIONS (1)
  - Tachyarrhythmia [Unknown]

NARRATIVE: CASE EVENT DATE: 20241114
